FAERS Safety Report 5752558-8 (Version None)
Quarter: 2008Q2

REPORT INFORMATION
  Report Type: 
  Country: None (occurrence: None)
  Receive Date: 20080529
  Receipt Date: 20080521
  Transmission Date: 20081010
  Serious: Yes (Other)
  Sender: FDA-Public Use
  Company Number: PHNU2007DE04199

PATIENT
  Sex: Female
  Weight: 64 kg

DRUGS (4)
  1. FEMARA [Suspect]
     Indication: BREAST CANCER
     Dosage: 2.5 MG, QD
     Route: 048
     Dates: start: 20050414, end: 20071211
  2. BELOC ZOK [Concomitant]
     Dates: start: 19880101
  3. RAMIPRIL [Concomitant]
     Dates: start: 19990101
  4. CITALOPRAM HYDROBROMIDE [Concomitant]
     Dates: start: 20010101

REACTIONS (5)
  - CHOLECYSTECTOMY [None]
  - CHOLELITHIASIS [None]
  - GASTRIC ULCER [None]
  - GENERAL PHYSICAL HEALTH DETERIORATION [None]
  - OSTEOPOROSIS [None]
